FAERS Safety Report 14573929 (Version 2)
Quarter: 2018Q1

REPORT INFORMATION
  Report Type: Spontaneous
  Country: CH (occurrence: CH)
  Receive Date: 20180226
  Receipt Date: 20180305
  Transmission Date: 20180509
  Serious: Yes (Hospitalization, Other)
  Sender: FDA-Public Use
  Company Number: CH-PFIZER INC-2018074355

PATIENT
  Age: 64 Year
  Sex: Female
  Weight: 69.2 kg

DRUGS (24)
  1. ESIDREX [Concomitant]
     Active Substance: HYDROCHLOROTHIAZIDE
     Dosage: 12.5 MG, 1X/DAY (0-0-0.5-0)
     Route: 048
  2. QUETIAPIN [Concomitant]
     Active Substance: QUETIAPINE
     Dosage: 37.5 MG, UNK
     Dates: start: 20180130
  3. BACTRIM [Concomitant]
     Active Substance: SULFAMETHOXAZOLE\TRIMETHOPRIM
     Indication: URINARY TRACT INFECTION
     Dosage: 1 DF, 2X/DAY (1-0-1)
     Route: 048
     Dates: start: 20180127, end: 20180131
  4. MADOPAR 62.5 [Concomitant]
     Active Substance: BENSERAZIDE HYDROCHLORIDE\LEVODOPA
     Dosage: 62.5 MG, 4X/DAY (1-1-1-1)
     Route: 048
     Dates: end: 20180124
  5. MOTILIUM [Concomitant]
     Active Substance: DOMPERIDONE
     Dosage: 10 MG, 3X/DAY (1-1-1-0)
     Route: 048
     Dates: end: 20180124
  6. AKINETON [Concomitant]
     Active Substance: BIPERIDEN HYDROCHLORIDE
     Dosage: 2 MG, 3X/DAY (1-1-1-0)
     Route: 048
     Dates: end: 20180125
  7. APROVEL [Concomitant]
     Active Substance: IRBESARTAN
     Dosage: 300 MG, 1X/DAY (0-0-1-0)
     Route: 048
  8. ASPIRIN CARDIO [Concomitant]
     Active Substance: ASPIRIN
     Dosage: 100 MG, 1X/DAY (1-0-0-0)
     Route: 048
     Dates: end: 20180125
  9. METOJECT [Concomitant]
     Active Substance: METHOTREXATE SODIUM
     Indication: SJOGREN^S SYNDROME
     Dosage: 20 MG, WEEKLY
     Route: 058
     Dates: start: 2011
  10. BRUFEN [Concomitant]
     Active Substance: IBUPROFEN
     Dosage: 400 MG, 1X/DAY (0-0-0-1)
     Route: 048
     Dates: end: 20180125
  11. TEMESTA (LORAZEPAM) [Suspect]
     Active Substance: LORAZEPAM
     Indication: AGITATION
     Dosage: 0.5 MG, 1X/DAY (0.5 TBL. IN RESERVE MAX. 5X/24 H, MOSTLY 1X/NIGHT NEEDED)
     Route: 048
     Dates: start: 20180129
  12. RIVOTRIL [Interacting]
     Active Substance: CLONAZEPAM
     Dosage: 0.5 MG, 1X/DAY (0-0-0-1)
     Route: 048
     Dates: start: 2017
  13. RIVOTRIL [Interacting]
     Active Substance: CLONAZEPAM
     Dosage: 2.5 MG, 1X/DAY (SINGLE DOSE)
     Route: 048
     Dates: start: 20180122, end: 20180129
  14. LEPONEX [Interacting]
     Active Substance: CLOZAPINE
     Indication: AGITATION
     Dosage: 6.25 MG, SINGLE (0-0-0-1/4 =6.25MG, FROM RESERVE)
     Route: 048
     Dates: start: 20180127, end: 20180127
  15. AKINETON [Concomitant]
     Active Substance: BIPERIDEN HYDROCHLORIDE
     Dosage: 4 MG, 1X/DAY (1-0-0-0)
     Route: 048
     Dates: start: 20180126, end: 20180129
  16. AMLODIPIN-MEPHA [Concomitant]
     Active Substance: AMLODIPINE MESYLATE
     Dosage: 2.5 MG, 1X/DAY
     Route: 048
  17. QUETIAPIN [Concomitant]
     Active Substance: QUETIAPINE
     Dosage: 1 DF, 3X/DAY
     Route: 048
     Dates: start: 20180128
  18. ACIDUM FOLICUM [Concomitant]
     Active Substance: FOLIC ACID
     Dosage: 5 MG, WEEKLY
     Route: 048
  19. QUETIAPIN [Concomitant]
     Active Substance: QUETIAPINE
     Dosage: 12.5 MG, 1X/DAY
     Dates: start: 20180128, end: 20180129
  20. QUETIAPIN [Concomitant]
     Active Substance: QUETIAPINE
     Dosage: 50 MG, UNK
     Dates: start: 20180131
  21. TEMESTA (LORAZEPAM) [Interacting]
     Active Substance: LORAZEPAM
     Indication: HALLUCINATION
  22. RIVOTRIL [Interacting]
     Active Substance: CLONAZEPAM
     Dosage: 1 MG, 1X/DAY
     Route: 048
     Dates: start: 20180130
  23. LEPONEX [Interacting]
     Active Substance: CLOZAPINE
     Indication: HALLUCINATION
     Dosage: 6.25 MG, 1X/DAY (0-0-0-1/4 =6.25 MG)
     Route: 048
     Dates: start: 20180123, end: 20180127
  24. CIPRALEX [Concomitant]
     Active Substance: ESCITALOPRAM OXALATE
     Dosage: 20 MG, 1X/DAY (1-0-0-0)
     Route: 048

REACTIONS (5)
  - Hypotension [Unknown]
  - Drug interaction [Recovered/Resolved]
  - Apnoea [Recovered/Resolved]
  - Electrocardiogram QT prolonged [Unknown]
  - Drug prescribing error [Recovered/Resolved]

NARRATIVE: CASE EVENT DATE: 201801
